FAERS Safety Report 11755506 (Version 1)
Quarter: 2015Q4

REPORT INFORMATION
  Report Type: Report from Study
  Country: JP (occurrence: JP)
  Receive Date: 20151119
  Receipt Date: 20151119
  Transmission Date: 20160304
  Serious: Yes (Hospitalization)
  Sender: FDA-Public Use
  Company Number: JP-WARNER CHILCOTT, LLC-1044436

PATIENT
  Age: 75 Year
  Sex: Male

DRUGS (9)
  1. BONALON [Concomitant]
     Active Substance: ALENDRONATE SODIUM
     Dates: start: 20140801
  2. BAKTAR [Concomitant]
     Active Substance: SULFAMETHOXAZOLE\TRIMETHOPRIM
  3. GASTER [Concomitant]
     Active Substance: FAMOTIDINE
  4. MUCODYNE [Concomitant]
     Active Substance: CARBOCYSTEINE
  5. MEDICON [Concomitant]
     Active Substance: DEXTROMETHORPHAN HYDROBROMIDE
  6. MUCOSTA [Concomitant]
     Active Substance: REBAMIPIDE
  7. LIPITOR [Concomitant]
     Active Substance: ATORVASTATIN CALCIUM
  8. PREDONINE [Concomitant]
     Active Substance: PREDNISOLONE\PREDNISOLONE ACETATE\PREDNISOLONE SODIUM SUCCINATE
  9. ACTONEL [Suspect]
     Active Substance: RISEDRONATE SODIUM
     Indication: OSTEOPOROSIS
     Route: 048
     Dates: start: 20140801

REACTIONS (1)
  - Cerebral infarction [Recovered/Resolved with Sequelae]
